FAERS Safety Report 8305326-7 (Version None)
Quarter: 2012Q2

REPORT INFORMATION
  Report Type: 
  Country: None (occurrence: None)
  Receive Date: 20120423
  Receipt Date: 20120419
  Transmission Date: 20120825
  Serious: No
  Sender: FDA-Public Use
  Company Number: US-PFIZER INC-2012097744

PATIENT
  Sex: Female
  Weight: 56.689 kg

DRUGS (3)
  1. OXYCODONE [Concomitant]
     Indication: ARTHROPATHY
     Dosage: UNK
  2. NUTROPIN [Concomitant]
     Indication: ARTHROPATHY
     Dosage: UNK
  3. LYRICA [Suspect]
     Indication: NERVE INJURY
     Dosage: 50 MG, 2X/DAY
     Route: 048
     Dates: start: 20120402, end: 20120417

REACTIONS (3)
  - FEELING ABNORMAL [None]
  - HOT FLUSH [None]
  - THERAPEUTIC RESPONSE UNEXPECTED [None]
